FAERS Safety Report 6997477-4 (Version None)
Quarter: 2010Q3

REPORT INFORMATION
  Report Type: 
  Country: None (occurrence: None)
  Receive Date: 20100918
  Receipt Date: 20091116
  Transmission Date: 20110219
  Serious: No
  Sender: FDA-Public Use
  Company Number: US-WYE-H11694409

PATIENT
  Sex: Female

DRUGS (5)
  1. PRISTIQ [Suspect]
     Route: 048
     Dates: start: 20090416
  2. LEVOTHYROXINE [Concomitant]
  3. COMPAZINE [Concomitant]
  4. ZETIA [Concomitant]
  5. ADVAIR DISKUS 100/50 [Concomitant]

REACTIONS (1)
  - HYPONATRAEMIA [None]
